FAERS Safety Report 13232607 (Version 1)
Quarter: 2017Q1

REPORT INFORMATION
  Report Type: Other
  Country: US (occurrence: US)
  Receive Date: 20170214
  Receipt Date: 20170214
  Transmission Date: 20170428
  Serious: Yes (Hospitalization)
  Sender: FDA-Public Use
  Company Number: US-ALSI-201700052

PATIENT
  Sex: Female

DRUGS (1)
  1. NITROGEN. [Suspect]
     Active Substance: NITROGEN
     Indication: ACCIDENTAL EXPOSURE TO PRODUCT
     Dates: start: 20170205, end: 20170205

REACTIONS (3)
  - Product leakage [Unknown]
  - Accidental exposure to product [Unknown]
  - Dyspnoea [Unknown]

NARRATIVE: CASE EVENT DATE: 20170205
